FAERS Safety Report 10290714 (Version 1)
Quarter: 2014Q3

REPORT INFORMATION
  Report Type: Spontaneous
  Country: US (occurrence: None)
  Receive Date: 20140708
  Receipt Date: 20140708
  Transmission Date: 20150326
  Serious: Yes (Life-Threatening)
  Sender: FDA-Public Use
  Company Number: None

PATIENT
  Age: 39 Year
  Sex: Male
  Weight: 81.65 kg

DRUGS (1)
  1. BUPROPION HCL [Suspect]
     Active Substance: BUPROPION HYDROCHLORIDE
     Indication: DEPRESSION
     Dosage: 37.5 MG (1/2 PILL) ONCE DAILY TAKEN BY MOUTH
     Route: 048
     Dates: start: 20090919, end: 20090919

REACTIONS (17)
  - Feeling abnormal [None]
  - Palpitations [None]
  - Drug interaction [None]
  - Gastrooesophageal reflux disease [None]
  - Occipital neuralgia [None]
  - Abnormal behaviour [None]
  - Rash [None]
  - Vomiting [None]
  - Presyncope [None]
  - Visual impairment [None]
  - Nausea [None]
  - Loss of consciousness [None]
  - Convulsion [None]
  - Neck injury [None]
  - Torticollis [None]
  - Head injury [None]
  - Body temperature decreased [None]

NARRATIVE: CASE EVENT DATE: 20090919
